FAERS Safety Report 20534228 (Version 2)
Quarter: 2022Q2

REPORT INFORMATION
  Report Type: Spontaneous
  Country: US (occurrence: US)
  Receive Date: 20220301
  Receipt Date: 20220403
  Transmission Date: 20220721
  Serious: No
  Sender: FDA-Public Use
  Company Number: US-SANOFI-00988734

PATIENT
  Age: 74 Year
  Sex: Male

DRUGS (1)
  1. DUPIXENT [Suspect]
     Active Substance: DUPILUMAB
     Indication: Skin disorder
     Dosage: 300 MG, QOW

REACTIONS (1)
  - Product use in unapproved indication [Unknown]

NARRATIVE: CASE EVENT DATE: 20220218
